FAERS Safety Report 8064469-6 (Version None)
Quarter: 2012Q1

REPORT INFORMATION
  Report Type: 
  Country: None (occurrence: None)
  Receive Date: 20120123
  Receipt Date: 20120115
  Transmission Date: 20120608
  Serious: Yes (Other)
  Sender: FDA-Public Use
  Company Number: PHHY2012MX003448

PATIENT
  Sex: Male

DRUGS (8)
  1. CLOPIDOGREL [Concomitant]
     Dosage: 1 DF/DAY
     Route: 048
  2. EXELON [Suspect]
     Indication: DEMENTIA ALZHEIMER'S TYPE
     Dosage: 4.6 MG/5 CM2 PER DAY
     Route: 062
     Dates: start: 20110115
  3. ENALAPRIL MALEATE [Concomitant]
     Dosage: 1 DF/DAY
     Route: 048
  4. NIMODIPINE [Concomitant]
     Dosage: 2 DF/DAY
     Route: 048
  5. METFORMIN HYDROCHLORIDE [Concomitant]
     Dosage: 0.5 DF/DAY
     Route: 048
  6. DIGOXIN [Concomitant]
     Dosage: 0.5 DF/DAY
     Route: 048
  7. OMEPRAZOLE [Concomitant]
     Dosage: 1 DF/DAY
     Route: 048
  8. SERTRALINE HYDROCHLORIDE [Concomitant]
     Dosage: 1 DF/DAY
     Route: 048

REACTIONS (3)
  - DIPLEGIA [None]
  - CEREBROVASCULAR ACCIDENT [None]
  - ANGER [None]
